FAERS Safety Report 10177693 (Version 1)
Quarter: 2014Q2

REPORT INFORMATION
  Report Type: Spontaneous
  Country: US (occurrence: US)
  Receive Date: 20140516
  Receipt Date: 20140516
  Transmission Date: 20141212
  Serious: No
  Sender: FDA-Public Use
  Company Number: US-SA-2014SA016934

PATIENT
  Age: 56 Year
  Sex: Female

DRUGS (5)
  1. APIDRA SOLOSTAR [Suspect]
     Indication: DIABETES MELLITUS
     Dosage: DOSE- 8/8/18
     Route: 058
     Dates: start: 20140206
  2. LANTUS [Suspect]
     Route: 058
  3. SOLOSTAR [Concomitant]
     Indication: DIABETES MELLITUS
     Dates: start: 20140206
  4. METFORMIN [Concomitant]
  5. VICTOZA [Concomitant]

REACTIONS (1)
  - Feeling abnormal [Unknown]
